FAERS Safety Report 9989578 (Version 2)
Quarter: 2014Q1

REPORT INFORMATION
  Report Type: Report from Study
  Country: US (occurrence: US)
  Receive Date: 20140310
  Receipt Date: 20140310
  Transmission Date: 20141002
  Serious: No
  Sender: FDA-Public Use
  Company Number: US-ABBVIE-13P-163-1103090-00

PATIENT
  Sex: Female

DRUGS (13)
  1. HUMIRA [Suspect]
     Indication: CROHN^S DISEASE
     Dates: start: 20121110
  2. LIPITOR [Suspect]
     Indication: PRODUCT USED FOR UNKNOWN INDICATION
  3. PROZAC [Concomitant]
     Indication: ANXIETY
  4. PROZAC [Concomitant]
     Indication: DEPRESSION
  5. ZINC [Concomitant]
     Indication: PROPHYLAXIS
  6. PROBIOTICS [Concomitant]
     Indication: SUPPLEMENTATION THERAPY
  7. ZYRTEC [Concomitant]
     Indication: SEASONAL ALLERGY
     Dosage: QHS
  8. ZYRTEC [Concomitant]
     Indication: URTICARIA CHRONIC
  9. LIDODERM [Concomitant]
     Indication: BACK PAIN
     Dosage: ON 12 HRS OFF 12 HRS
  10. LORTAB [Concomitant]
     Indication: BACK DISORDER
     Dosage: 7.5/500MG 2-3 TIMES PER DAY
  11. HYDROXYZINE HCL [Concomitant]
     Indication: URTICARIA
  12. IMODIUM [Concomitant]
     Indication: PRODUCT USED FOR UNKNOWN INDICATION
  13. ASTERPRO [Concomitant]
     Indication: SEASONAL ALLERGY
     Dosage: 0.15 NASAL 1 SPRAY EACH NOSTRIL
     Route: 045

REACTIONS (5)
  - Blood cholesterol abnormal [Unknown]
  - Constipation [Unknown]
  - Pyrexia [Recovered/Resolved]
  - Chills [Recovered/Resolved]
  - Pain [Recovered/Resolved]
